FAERS Safety Report 15597158 (Version 1)
Quarter: 2018Q4

REPORT INFORMATION
  Report Type: Spontaneous
  Country: US (occurrence: US)
  Receive Date: 20181108
  Receipt Date: 20181108
  Transmission Date: 20190205
  Serious: No
  Sender: FDA-Public Use
  Company Number: US-AMERIGEN PHARMACEUTICALS, INC-2018AMG000019

PATIENT

DRUGS (1)
  1. TEMOZOLOMIDE 100 MG [Suspect]
     Active Substance: TEMOZOLOMIDE
     Indication: BRAIN NEOPLASM
     Dosage: UNK UNK, BID,EVERY MORNING AS SUPPLEMENT FOR HER RADIATION CHEMOTHERAPY
     Route: 048
     Dates: start: 201806

REACTIONS (1)
  - Drug ineffective [Not Recovered/Not Resolved]
